FAERS Safety Report 23170914 (Version 1)
Quarter: 2023Q4

REPORT INFORMATION
  Report Type: Spontaneous
  Country: US (occurrence: None)
  Receive Date: 20231109
  Receipt Date: 20231109
  Transmission Date: 20240110
  Serious: No
  Sender: FDA-Public Use
  Company Number: None

PATIENT
  Age: 63 Year
  Sex: Male
  Weight: 157.5 kg

DRUGS (1)
  1. MOUNJARO [Suspect]
     Active Substance: TIRZEPATIDE

REACTIONS (8)
  - Drug ineffective [None]
  - Glycosylated haemoglobin increased [None]
  - Therapy cessation [None]
  - Diarrhoea [None]
  - Eructation [None]
  - Gastrooesophageal reflux disease [None]
  - Gastrointestinal sounds abnormal [None]
  - Abdominal distension [None]

NARRATIVE: CASE EVENT DATE: 20231102
